FAERS Safety Report 15878189 (Version 1)
Quarter: 2019Q1

REPORT INFORMATION
  Report Type: Spontaneous
  Country: US (occurrence: US)
  Receive Date: 20190124
  Receipt Date: 20190124
  Transmission Date: 20190417
  Serious: No
  Sender: FDA-Public Use
  Company Number: None

PATIENT

DRUGS (1)
  1. ALBUTEROL 0.083% NEB RITE [Suspect]
     Active Substance: ALBUTEROL

REACTIONS (1)
  - Death [None]
